FAERS Safety Report 5647294-2 (Version None)
Quarter: 2008Q1

REPORT INFORMATION
  Report Type: 
  Country: None (occurrence: None)
  Receive Date: 20080303
  Receipt Date: 20080226
  Transmission Date: 20080703
  Serious: Yes (Hospitalization)
  Sender: FDA-Public Use
  Company Number: IT-BAYER-200813388GPV

PATIENT
  Age: 55 Year
  Sex: Female

DRUGS (3)
  1. ULTRAVIST 370 [Suspect]
     Route: 042
     Dates: start: 20071109, end: 20071109
  2. ZANTAC ( RANITINE) [Concomitant]
     Indication: HYPOTENSION
     Route: 042
  3. EPINEPHRINE [Concomitant]
     Indication: ERYTHEMA
     Route: 042

REACTIONS (3)
  - ERYTHEMA [None]
  - HYPOTENSION [None]
  - URTICARIA [None]
